FAERS Safety Report 20405312 (Version 2)
Quarter: 2022Q2

REPORT INFORMATION
  Report Type: Report from Study
  Country: CA (occurrence: CA)
  Receive Date: 20220131
  Receipt Date: 20220616
  Transmission Date: 20220721
  Serious: Yes (Other)
  Sender: FDA-Public Use
  Company Number: CA-BAYER-2022A013791

PATIENT
  Sex: Male

DRUGS (1)
  1. EYLEA [Suspect]
     Active Substance: AFLIBERCEPT
     Indication: Diabetic retinal oedema
     Dosage: UNK, RIGHT EYE, SOLUTION FOR INJECTION
     Dates: start: 20220119

REACTIONS (2)
  - Blindness [Not Recovered/Not Resolved]
  - Eye disorder [Unknown]

NARRATIVE: CASE EVENT DATE: 20220119
